FAERS Safety Report 10928237 (Version 1)
Quarter: 2015Q1

REPORT INFORMATION
  Report Type: Spontaneous
  Country: US (occurrence: US)
  Receive Date: 20150319
  Receipt Date: 20150319
  Transmission Date: 20150721
  Serious: No
  Sender: FDA-Public Use
  Company Number: US-BIOGENIDEC-2015BI034262

PATIENT
  Age: 70 Year
  Sex: Female

DRUGS (1)
  1. TECFIDERA [Suspect]
     Active Substance: DIMETHYL FUMARATE
     Indication: MULTIPLE SCLEROSIS
     Route: 048
     Dates: start: 20130813, end: 20141029

REACTIONS (3)
  - Memory impairment [Not Recovered/Not Resolved]
  - Posture abnormal [Not Recovered/Not Resolved]
  - Abnormal sensation in eye [Not Recovered/Not Resolved]

NARRATIVE: CASE EVENT DATE: 2014
